FAERS Safety Report 8853305 (Version 1)
Quarter: 2012Q4

REPORT INFORMATION
  Report Type: 
  Country: US (occurrence: US)
  Receive Date: 20121022
  Receipt Date: 20121022
  Transmission Date: 20130627
  Serious: No
  Sender: FDA-Public Use
  Company Number: US-009507513-1210USA007437

PATIENT
  Sex: Female

DRUGS (1)
  1. TIMOPTIC [Suspect]
     Route: 047

REACTIONS (1)
  - Intraocular pressure test abnormal [Unknown]
